FAERS Safety Report 7660302-2 (Version None)
Quarter: 2011Q3

REPORT INFORMATION
  Report Type: 
  Country: None (occurrence: None)
  Receive Date: 20110805
  Receipt Date: 20110726
  Transmission Date: 20111222
  Serious: Yes (Hospitalization)
  Sender: FDA-Public Use
  Company Number: PHHY2011US69128

PATIENT
  Sex: Female

DRUGS (2)
  1. ENSURE [Concomitant]
     Indication: MEDICAL DIET
  2. EXJADE [Suspect]
     Dosage: 1500 MG, QD
     Route: 048

REACTIONS (1)
  - BLOOD POTASSIUM ABNORMAL [None]
